FAERS Safety Report 14268929 (Version 1)
Quarter: 2017Q4

REPORT INFORMATION
  Report Type: Spontaneous
  Country: CA (occurrence: CA)
  Receive Date: 20171211
  Receipt Date: 20171211
  Transmission Date: 20180321
  Serious: Yes (Other)
  Sender: FDA-Public Use
  Company Number: CA-JUBILANT CADISTA PHARMACEUTICALS-2017JUB00415

PATIENT
  Age: 86 Year
  Sex: Male

DRUGS (6)
  1. PREDNISONE. [Suspect]
     Active Substance: PREDNISONE
     Dosage: 50 MG, 1X/DAY
     Route: 065
  2. PREDNISONE. [Suspect]
     Active Substance: PREDNISONE
     Indication: PEMPHIGOID
     Dosage: 30 MG, 1X/DAY
     Route: 065
  3. PREDNISONE. [Suspect]
     Active Substance: PREDNISONE
     Dosage: SLOWLY TAPERED DOWN TO 20 MG/D OVER 4 MONTHS
     Route: 065
  4. MYCOPHENOLATE MOFETIL. [Suspect]
     Active Substance: MYCOPHENOLATE MOFETIL
     Indication: PEMPHIGOID
     Dosage: 1 G, 1X/DAY
     Route: 065
  5. PREDNISONE. [Suspect]
     Active Substance: PREDNISONE
     Dosage: 60 MG, 1X/DAY
     Route: 065
  6. CLOBETASOL [Suspect]
     Active Substance: CLOBETASOL
     Indication: PEMPHIGOID
     Route: 061

REACTIONS (1)
  - Kaposi^s sarcoma [Unknown]
